FAERS Safety Report 8774215 (Version 1)
Quarter: 2012Q4

REPORT INFORMATION
  Report Type: 
  Country: US (occurrence: US)
  Receive Date: 20120904
  Receipt Date: 20120904
  Transmission Date: 20130627
  Serious: Yes (Hospitalization, Other)
  Sender: FDA-Public Use
  Company Number: US-ELI_LILLY_AND_COMPANY-US201202006338

PATIENT
  Age: 68 Year
  Sex: Female

DRUGS (10)
  1. FORTEO [Suspect]
     Indication: OSTEOPOROSIS
     Dosage: 20 ug, qd
     Dates: start: 201202
  2. FORTEO [Suspect]
  3. PREDNISONE [Concomitant]
     Dosage: UNK, unknown
  4. OXYCONTIN [Concomitant]
     Dosage: UNK, unknown
  5. METRONIDAZOLE [Concomitant]
     Dosage: UNK, unknown
  6. CIPROFLOXACIN HCL [Concomitant]
     Dosage: UNK, unknown
  7. CALCIUM CITRATE WITH VITAMIN D [Concomitant]
     Dosage: UNK, unknown
  8. ASPIRIN [Concomitant]
     Dosage: UNK, unknown
  9. ALBUTEROL SULFATE [Concomitant]
     Indication: ASTHMA
     Dosage: UNK, unknown
  10. BROVANA [Concomitant]
     Indication: ASTHMA
     Dosage: UNK, unknown

REACTIONS (5)
  - Intestinal perforation [Unknown]
  - Diverticulitis [Unknown]
  - Colostomy [Unknown]
  - Cataract [Not Recovered/Not Resolved]
  - Injection site bruising [Unknown]
